FAERS Safety Report 5679438-0 (Version None)
Quarter: 2008Q1

REPORT INFORMATION
  Report Type: 
  Country: None (occurrence: None)
  Receive Date: 20080321
  Receipt Date: 20080304
  Transmission Date: 20080703
  Serious: Yes (Life-Threatening, Hospitalization)
  Sender: FDA-Public Use
  Company Number: 2006-00702

PATIENT
  Age: 58 Year
  Sex: Male

DRUGS (2)
  1. VELCADE [Suspect]
     Indication: MULTIPLE MYELOMA
     Dosage: 2.50 MG, INTRAVENOUS
     Route: 042
     Dates: start: 20060220, end: 20060302
  2. DEXAMETHASONE TAB [Suspect]
     Indication: MULTIPLE MYELOMA
     Dosage: 40.00 MG, ORAL
     Route: 048
     Dates: start: 20060220, end: 20060303

REACTIONS (5)
  - BRAIN ABSCESS [None]
  - ENDOCARDITIS STAPHYLOCOCCAL [None]
  - INFECTION IN AN IMMUNOCOMPROMISED HOST [None]
  - PLEURISY [None]
  - STAPHYLOCOCCAL SEPSIS [None]
